FAERS Safety Report 7905399-7 (Version None)
Quarter: 2011Q4

REPORT INFORMATION
  Report Type: 
  Country: None (occurrence: None)
  Receive Date: 20111109
  Receipt Date: 20111107
  Transmission Date: 20120403
  Serious: Yes (Hospitalization, Disabling, Other)
  Sender: FDA-Public Use
  Company Number: US-MERCK-1004USA00192

PATIENT
  Age: 79 Year
  Sex: Female
  Weight: 68 kg

DRUGS (4)
  1. FOSAMAX [Suspect]
     Route: 048
     Dates: start: 20000322
  2. FOSAMAX [Suspect]
     Route: 048
     Dates: start: 20031121, end: 20071201
  3. PREMARIN [Concomitant]
     Route: 065
  4. FOSAMAX [Suspect]
     Indication: OSTEOPENIA
     Route: 048
     Dates: start: 19970723, end: 20031120

REACTIONS (59)
  - ADVERSE DRUG REACTION [None]
  - URTICARIA [None]
  - ESCHERICHIA URINARY TRACT INFECTION [None]
  - DENTAL FISTULA [None]
  - URINARY TRACT INFECTION [None]
  - TOOTH FRACTURE [None]
  - PAIN IN EXTREMITY [None]
  - ORAL INFECTION [None]
  - LIMB DEFORMITY [None]
  - OSTEONECROSIS OF JAW [None]
  - BLOOD GLUCOSE INCREASED [None]
  - STRESS FRACTURE [None]
  - HAEMORRHOIDS [None]
  - EYE DISORDER [None]
  - PALPITATIONS [None]
  - TENDON RUPTURE [None]
  - ANAEMIA [None]
  - CONSTIPATION [None]
  - LUMBAR SPINAL STENOSIS [None]
  - PLATELET COUNT DECREASED [None]
  - PROCEDURAL NAUSEA [None]
  - DYSPEPSIA [None]
  - FISTULA [None]
  - TOOTH ABSCESS [None]
  - ORAL CAVITY FISTULA [None]
  - NAUSEA [None]
  - IMPAIRED HEALING [None]
  - IDIOPATHIC PULMONARY FIBROSIS [None]
  - HYPOTHYROIDISM [None]
  - VENTRICULAR EXTRASYSTOLES [None]
  - CARPAL TUNNEL SYNDROME [None]
  - ARTHRALGIA [None]
  - DECREASED APPETITE [None]
  - RETINAL DETACHMENT [None]
  - LOW TURNOVER OSTEOPATHY [None]
  - SWELLING [None]
  - SPINAL COLUMN STENOSIS [None]
  - HEART RATE DECREASED [None]
  - PERIPHERAL VASCULAR DISORDER [None]
  - INTERSTITIAL LUNG DISEASE [None]
  - EXTRASYSTOLES [None]
  - BONE DISORDER [None]
  - BACK PAIN [None]
  - SWELLING FACE [None]
  - RETINAL TEAR [None]
  - CYST [None]
  - CANDIDIASIS [None]
  - ANAL SKIN TAGS [None]
  - FEMUR FRACTURE [None]
  - VERTIGO [None]
  - RECTOCELE [None]
  - TOOTH DISORDER [None]
  - HAEMATURIA [None]
  - ORAL HERPES [None]
  - INTERVERTEBRAL DISC PROTRUSION [None]
  - COUGH [None]
  - DYSPNOEA [None]
  - DENTAL CARIES [None]
  - FRACTURE DELAYED UNION [None]
